FAERS Safety Report 6554533-2 (Version None)
Quarter: 2010Q1

REPORT INFORMATION
  Report Type: 
  Country: None (occurrence: None)
  Receive Date: 20100127
  Receipt Date: 20100118
  Transmission Date: 20100710
  Serious: Yes (Other)
  Sender: FDA-Public Use
  Company Number: PHHY2010CA03122

PATIENT

DRUGS (3)
  1. ALISKIREN ALI+ [Suspect]
     Dosage: 300 MG DAILY
     Route: 065
  2. BETA BLOCKING AGENTS [Concomitant]
     Route: 065
  3. CALCIUM CHANNEL BLOCKERS [Concomitant]
     Route: 065

REACTIONS (1)
  - RENAL FAILURE [None]
